FAERS Safety Report 4351944-0 (Version None)
Quarter: 2004Q2

REPORT INFORMATION
  Report Type: 
  Country: None (occurrence: None)
  Receive Date: 20040429
  Receipt Date: 20040116
  Transmission Date: 20050107
  Serious: No
  Sender: FDA-Public Use
  Company Number: 2004-112290-NL

PATIENT
  Age: 39 Year
  Sex: Female
  Weight: 79.5 kg

DRUGS (2)
  1. NUVARING [Suspect]
     Indication: CONTRACEPTION
     Dates: start: 20030601
  2. GYNEZOLE VAGINAL CREAM: CLOTRIMAZOLE +BETAMETHASONE [Concomitant]

REACTIONS (2)
  - FUNGAL INFECTION [None]
  - METRORRHAGIA [None]
